FAERS Safety Report 4920993-3 (Version None)
Quarter: 2006Q1

REPORT INFORMATION
  Report Type: 
  Country: None (occurrence: None)
  Receive Date: 20060113
  Receipt Date: 20050915
  Transmission Date: 20060701
  Serious: No
  Sender: FDA-Public Use
  Company Number: 2005SP003114

PATIENT
  Age: 51 Year
  Sex: Female
  Weight: 60.3284 kg

DRUGS (2)
  1. LUNESTA [Suspect]
     Dosage: 2 MG HS ORAL ; 1 MG HS ORAL
     Route: 048
     Dates: start: 20050501, end: 20050101
  2. LUNESTA [Suspect]
     Dosage: 2 MG HS ORAL ; 1 MG HS ORAL
     Route: 048
     Dates: start: 20050101, end: 20050825

REACTIONS (1)
  - HYPERTONIC BLADDER [None]
